FAERS Safety Report 16352306 (Version 1)
Quarter: 2019Q3

REPORT INFORMATION
  Report Type: Spontaneous
  Country: US (occurrence: US)
  Receive Date: 20190523
  Receipt Date: 20190523
  Transmission Date: 20191004
  Serious: Yes (Other)
  Sender: FDA-Public Use
  Company Number: None

PATIENT
  Age: 14 Year
  Sex: Female
  Weight: 49.5 kg

DRUGS (2)
  1. RENFLEXIS [Suspect]
     Active Substance: INFLIXIMAB-ABDA
     Indication: CROHN^S DISEASE
     Dosage: ?          OTHER FREQUENCY:EVERY 5 WEEKS;?
     Route: 042
     Dates: start: 20190311, end: 20190312
  2. PREDNISONE. [Concomitant]
     Active Substance: PREDNISONE

REACTIONS (5)
  - Product substitution issue [None]
  - Product prescribing error [None]
  - Myalgia [None]
  - Skin haemorrhage [None]
  - Henoch-Schonlein purpura [None]

NARRATIVE: CASE EVENT DATE: 20190329
